FAERS Safety Report 19440731 (Version 1)
Quarter: 2021Q2

REPORT INFORMATION
  Report Type: Spontaneous
  Country: JP (occurrence: JP)
  Receive Date: 20210621
  Receipt Date: 20210621
  Transmission Date: 20210717
  Serious: Yes (Other)
  Sender: FDA-Public Use
  Company Number: JP-SA-2021SA195848

PATIENT
  Age: 73 Year
  Sex: Male

DRUGS (1)
  1. ELPLAT [Suspect]
     Active Substance: OXALIPLATIN
     Dosage: INJECTION
     Route: 065

REACTIONS (2)
  - Enterocolitis [Unknown]
  - Febrile neutropenia [Unknown]
